FAERS Safety Report 10572995 (Version 2)
Quarter: 2014Q4

REPORT INFORMATION
  Report Type: Report from Study
  Country: US (occurrence: US)
  Receive Date: 20141110
  Receipt Date: 20141110
  Transmission Date: 20150529
  Serious: Yes (Death, Hospitalization)
  Sender: FDA-Public Use
  Company Number: US-ROCHE-1474792

PATIENT
  Age: 57 Year
  Sex: Male
  Weight: 93.7 kg

DRUGS (2)
  1. BEVACIZUMAB [Suspect]
     Active Substance: BEVACIZUMAB
     Indication: MALIGNANT MELANOMA
     Dosage: TOTAL DOSE ADMINISTERED: 1400MG, LAST ADMINISTRATION DATE OF IND AGENT: 12/JUN/2014
     Route: 042
     Dates: start: 20140522
  2. IPILIMUMAB [Suspect]
     Active Substance: IPILIMUMAB
     Indication: MALIGNANT MELANOMA
     Dosage: TOTAL DOSE ADMINISTERED: 280 MG?LAST ADMINISTRATION DATE OF IND AGENT: 12/JUN/2014
     Route: 042
     Dates: start: 20140522

REACTIONS (5)
  - Aspiration [Fatal]
  - Respiratory failure [Fatal]
  - Hyponatraemia [Unknown]
  - Abdominal pain [Unknown]
  - Cardiac arrest [Fatal]

NARRATIVE: CASE EVENT DATE: 20140619
